FAERS Safety Report 7117630-9 (Version None)
Quarter: 2010Q4

REPORT INFORMATION
  Report Type: 
  Country: None (occurrence: None)
  Receive Date: 20101122
  Receipt Date: 20101110
  Transmission Date: 20110411
  Serious: Yes (Hospitalization)
  Sender: FDA-Public Use
  Company Number: US-MYLANLABS-2010S1021038

PATIENT
  Age: 3 Day
  Sex: Male
  Weight: 3 kg

DRUGS (3)
  1. ZIDOVUDINE [Suspect]
     Dosage: IN 24 HOURS PRIOR TO ADMISSION; 10-FOLD DOSING ERROR
     Route: 048
  2. ZIDOVUDINE [Suspect]
     Dosage: 12 MG/DAY
     Route: 048
  3. ZIDOVUDINE [Suspect]
     Route: 064

REACTIONS (4)
  - ACCIDENTAL OVERDOSE [None]
  - BLOOD LACTIC ACID INCREASED [None]
  - DRUG EXPOSURE DURING PREGNANCY [None]
  - SINUS BRADYCARDIA [None]
